FAERS Safety Report 8764808 (Version 2)
Quarter: 2013Q2

REPORT INFORMATION
  Report Type: Spontaneous
  Country: US (occurrence: US)
  Receive Date: 20120831
  Receipt Date: 20130412
  Transmission Date: 20140414
  Serious: Yes (Hospitalization, Other)
  Sender: FDA-Public Use
  Company Number: US-009507513-1109USA03244

PATIENT
  Sex: Female
  Weight: 82.54 kg

DRUGS (7)
  1. FOSAMAX [Suspect]
     Indication: OSTEOPOROSIS PROPHYLAXIS
     Dosage: 10 MG, QD
     Route: 048
     Dates: start: 199908, end: 200112
  2. FOSAMAX [Suspect]
     Indication: OSTEOPOROSIS
     Dosage: 70 MG, QW
     Route: 048
     Dates: start: 200112, end: 200803
  3. FOSAMAX [Suspect]
     Indication: OSTEOPOROSIS PROPHYLAXIS
     Dosage: 70 MG, QW
     Route: 048
     Dates: start: 200803, end: 200909
  4. FOSAMAX [Suspect]
     Indication: OSTEOPOROSIS
  5. FOSAMAX [Suspect]
     Indication: OSTEOPOROSIS PROPHYLAXIS
     Dosage: 70 MG, UNK
     Route: 048
     Dates: start: 20080706, end: 20090620
  6. FOSAMAX [Suspect]
     Indication: OSTEOPOROSIS
  7. CALCIUM (UNSPECIFIED) (+) VITAMIN D (UNSPECIFIED) [Concomitant]
     Dosage: 600 MG, BID
     Dates: start: 200909

REACTIONS (49)
  - Femur fracture [Unknown]
  - Open reduction of fracture [Unknown]
  - Arteriosclerosis coronary artery [Unknown]
  - Syncope [Unknown]
  - Myocardial infarction [Unknown]
  - Hypotension [Unknown]
  - Bradycardia [Unknown]
  - Cerebrovascular accident [Unknown]
  - Hip fracture [Unknown]
  - Coronary arterial stent insertion [Unknown]
  - Anaemia [Unknown]
  - Hyperlipidaemia [Unknown]
  - Coronary artery disease [Unknown]
  - Lumbar spinal stenosis [Not Recovered/Not Resolved]
  - Vitamin D deficiency [Unknown]
  - Hypertension [Unknown]
  - Anxiety [Not Recovered/Not Resolved]
  - Ankle fracture [Unknown]
  - Fall [Unknown]
  - Fibula fracture [Unknown]
  - Foot fracture [Unknown]
  - Fibula fracture [Recovered/Resolved]
  - Peripheral arterial occlusive disease [Unknown]
  - Diabetic vascular disorder [Unknown]
  - Foot fracture [Unknown]
  - Syncope [Unknown]
  - Contusion [Unknown]
  - Haematoma [Unknown]
  - Intervertebral disc degeneration [Unknown]
  - Sciatica [Unknown]
  - Scoliosis [Unknown]
  - Chronic sinusitis [Unknown]
  - Rhinitis allergic [Unknown]
  - Panic disorder [Unknown]
  - Cataract subcapsular [Unknown]
  - Laceration [Unknown]
  - Infection [Unknown]
  - Bronchitis bacterial [Unknown]
  - Insomnia [Unknown]
  - Adjustment disorder with depressed mood [Unknown]
  - Actinic keratosis [Unknown]
  - Laceration [Unknown]
  - Impaired healing [Unknown]
  - Large intestine polyp [Unknown]
  - Gastrointestinal haemorrhage [Unknown]
  - Haemoglobin decreased [Unknown]
  - Polypectomy [Unknown]
  - Gastrooesophageal reflux disease [Unknown]
  - Myalgia [Unknown]
